FAERS Safety Report 24283519 (Version 8)
Quarter: 2025Q1

REPORT INFORMATION
  Report Type: Report from Study
  Country: US (occurrence: US)
  Receive Date: 20240904
  Receipt Date: 20250320
  Transmission Date: 20250409
  Serious: Yes (Hospitalization)
  Sender: SUNOVION
  Company Number: US-SUMITOMO PHARMA SWITZERLAND GMBH-2024SPA000830

PATIENT

DRUGS (4)
  1. ORGOVYX [Suspect]
     Active Substance: RELUGOLIX
     Indication: Prostate cancer
     Dosage: 240 MG, SINGLE
     Route: 048
     Dates: start: 20220906, end: 20220907
  2. ORGOVYX [Suspect]
     Active Substance: RELUGOLIX
     Dosage: 120 MG, QD
     Route: 048
     Dates: start: 20220907
  3. GABAPENTIN [Suspect]
     Active Substance: GABAPENTIN
     Route: 065
  4. XTANDI [Suspect]
     Active Substance: ENZALUTAMIDE
     Route: 065

REACTIONS (16)
  - Nervous system disorder [Unknown]
  - Wrist fracture [Unknown]
  - Fall [Unknown]
  - Muscular weakness [Unknown]
  - Sinusitis [Unknown]
  - Gait inability [Unknown]
  - Confusional state [Unknown]
  - Lethargy [Unknown]
  - Dry skin [Unknown]
  - White blood cell count decreased [Unknown]
  - Malaise [Unknown]
  - Alopecia [Unknown]
  - Hot flush [Unknown]
  - Fatigue [Unknown]
  - Red blood cell count decreased [Unknown]
  - Incorrect dose administered [Unknown]
